FAERS Safety Report 8595786 (Version 4)
Quarter: 2014Q1

REPORT INFORMATION
  Report Type: Spontaneous
  Country: US (occurrence: US)
  Receive Date: 20120605
  Receipt Date: 20140131
  Transmission Date: 20141002
  Serious: Yes (Hospitalization, Disabling, Other)
  Sender: FDA-Public Use
  Company Number: US-ASTRAZENECA-2012SE35661

PATIENT
  Age: 48 Year
  Sex: Male
  Weight: 79.8 kg

DRUGS (19)
  1. NEXIUM [Suspect]
     Indication: GASTROOESOPHAGEAL REFLUX DISEASE
     Route: 048
     Dates: start: 200501, end: 201107
  2. NEXIUM [Suspect]
     Indication: GASTROOESOPHAGEAL REFLUX DISEASE
     Route: 048
     Dates: start: 20060524
  3. PRILOSEC [Suspect]
     Route: 048
     Dates: start: 201107
  4. PROTONIX [Concomitant]
     Dates: start: 201107
  5. ALLOPURINOL [Concomitant]
     Indication: GOUT
     Dates: start: 20130516
  6. COLCRYS [Concomitant]
     Indication: GOUT
  7. VYTORIN [Concomitant]
     Dosage: 10-40 MG
     Dates: start: 20080713
  8. AVALIDE [Concomitant]
     Dosage: 150-12.5 MG
  9. METHYLPREDNISOLONE [Concomitant]
     Dates: start: 20060420
  10. KLOR-CON M20 [Concomitant]
     Dates: start: 20101015
  11. DEXILANT DR [Concomitant]
     Dates: start: 20110121
  12. LOVENOX [Concomitant]
  13. ZOLPIDEM TARTRATE [Concomitant]
     Dates: start: 20110127
  14. BENICAR [Concomitant]
  15. VIAGRA [Concomitant]
  16. TRIBENZOR [Concomitant]
     Dosage: 40.5/ 12.5 MG
     Dates: start: 20110522
  17. AMLODIPINE BESYLATE [Concomitant]
     Dates: start: 20130319
  18. CIALIS [Concomitant]
     Dates: start: 20130726
  19. LOSARTAN POTASSIUM [Concomitant]
     Dates: start: 20131001

REACTIONS (6)
  - Osteonecrosis [Unknown]
  - Hip fracture [Unknown]
  - Fall [Unknown]
  - Bone density decreased [Unknown]
  - Osteoporosis [Unknown]
  - Multiple fractures [Unknown]
